FAERS Safety Report 9382789 (Version 1)
Quarter: 2013Q3

REPORT INFORMATION
  Report Type: Spontaneous
  Country: GB (occurrence: GB)
  Receive Date: 20130703
  Receipt Date: 20130703
  Transmission Date: 20140515
  Serious: Yes (Other)
  Sender: FDA-Public Use
  Company Number: GB-UCBSA-090339

PATIENT
  Age: 21 Year
  Sex: Male

DRUGS (2)
  1. KEPPRA [Suspect]
     Dosage: 2000 MG
  2. LAMOTRIGINE [Concomitant]
     Dosage: 300 MG

REACTIONS (4)
  - Abnormal behaviour [Unknown]
  - Petit mal epilepsy [Recovering/Resolving]
  - Psychomotor hyperactivity [Unknown]
  - Agitation [Unknown]
